FAERS Safety Report 5797964-0 (Version None)
Quarter: 2008Q3

REPORT INFORMATION
  Report Type: 
  Country: None (occurrence: None)
  Receive Date: 20080701
  Receipt Date: 20080701
  Transmission Date: 20090109
  Serious: No
  Sender: FDA-Public Use
  Company Number: None

PATIENT
  Age: 80 Year
  Sex: Female
  Weight: 52.4812 kg

DRUGS (6)
  1. ALENDRONATE SODIUM [Suspect]
     Indication: OSTEOPOROSIS
     Dosage: 70 MG WEEKLY PO
     Route: 048
     Dates: start: 20080501
  2. PROPRANOLOL [Concomitant]
  3. HYDROCHLOROTHIAZIDE [Concomitant]
  4. M.V.I. [Concomitant]
  5. ASCORBIC ACID [Concomitant]
  6. CALCIUM/MAGNESIUM/ZINC [Concomitant]

REACTIONS (2)
  - DRUG HYPERSENSITIVITY [None]
  - PHARMACEUTICAL PRODUCT COMPLAINT [None]
